FAERS Safety Report 8615883-9 (Version None)
Quarter: 2012Q3

REPORT INFORMATION
  Report Type: 
  Country: None (occurrence: None)
  Receive Date: 20120823
  Receipt Date: 20120813
  Transmission Date: 20120928
  Serious: Yes (Hospitalization, Disabling)
  Sender: FDA-Public Use
  Company Number: US-GLAXOSMITHKLINE-A0685357A

PATIENT
  Age: 52 Year
  Sex: Male
  Weight: 145.5 kg

DRUGS (4)
  1. AVANDIA [Suspect]
     Indication: TYPE 2 DIABETES MELLITUS
     Dosage: 4MG TWICE PER DAY
     Route: 048
     Dates: start: 20011012, end: 20060824
  2. LANTUS [Concomitant]
     Dates: start: 20030101, end: 20061101
  3. TOPROL-XL [Concomitant]
     Dates: start: 20050201, end: 20061101
  4. ATORVASTATIN [Concomitant]
     Dates: start: 20050201, end: 20061101

REACTIONS (7)
  - HEART INJURY [None]
  - ANXIETY [None]
  - OEDEMA [None]
  - INJURY [None]
  - CARDIAC DISORDER [None]
  - MYOCARDIAL INFARCTION [None]
  - PAIN [None]
